FAERS Safety Report 7877646-1 (Version None)
Quarter: 2011Q4

REPORT INFORMATION
  Report Type: 
  Country: None (occurrence: None)
  Receive Date: 20111031
  Receipt Date: 20111031
  Transmission Date: 20120403
  Serious: Yes (Other)
  Sender: FDA-Public Use
  Company Number: None

PATIENT
  Sex: Male

DRUGS (4)
  1. OXYBUTYNIN [Suspect]
     Dosage: 10 MG
     Route: 048
     Dates: start: 20110816, end: 20111027
  2. PRILOSEC [Concomitant]
     Route: 048
  3. ASPIRIN [Concomitant]
     Route: 048
  4. LISINOPRIL [Concomitant]
     Route: 048

REACTIONS (2)
  - PRODUCT SUBSTITUTION ISSUE [None]
  - MEDICATION RESIDUE [None]
